FAERS Safety Report 7435915-3 (Version None)
Quarter: 2011Q2

REPORT INFORMATION
  Report Type: 
  Country: None (occurrence: None)
  Receive Date: 20110418
  Receipt Date: 20110407
  Transmission Date: 20111010
  Serious: Yes (Hospitalization, Other)
  Sender: FDA-Public Use
  Company Number: 1000020083

PATIENT
  Age: 82 Year
  Sex: Female
  Weight: 48.6 kg

DRUGS (4)
  1. AMLOR (AMLODIPINE BESILATE) (TABLETS) (AMLODIPINE BESILATE) [Concomitant]
  2. MEMANTINE [Suspect]
     Indication: DEMENTIA ALZHEIMER'S TYPE
     Dosage: 10 MG (10 MG, 1 IN 1 D), ORAL
     Route: 048
     Dates: start: 20101229, end: 20110111
  3. TRANSIPEG (MACROGOL) (POWDER) (MACROGOL) [Concomitant]
  4. FOLIC ACID [Concomitant]

REACTIONS (4)
  - BEDRIDDEN [None]
  - UNRESPONSIVE TO STIMULI [None]
  - APATHY [None]
  - SOMNOLENCE [None]
